FAERS Safety Report 20572518 (Version 1)
Quarter: 2022Q1

REPORT INFORMATION
  Report Type: Spontaneous
  Country: RU (occurrence: None)
  Receive Date: 20220309
  Receipt Date: 20220309
  Transmission Date: 20220424
  Serious: Yes (Other)
  Sender: FDA-Public Use
  Company Number: RU-ROCHE-3039640

PATIENT
  Age: 41 Year
  Sex: Female

DRUGS (4)
  1. TRASTUZUMAB [Suspect]
     Active Substance: TRASTUZUMAB
     Indication: Breast cancer metastatic
     Route: 065
  2. PERTUZUMAB [Suspect]
     Active Substance: PERTUZUMAB
     Indication: Breast cancer metastatic
     Route: 065
  3. DOCETAXEL [Suspect]
     Active Substance: DOCETAXEL
     Indication: Breast cancer metastatic
     Route: 065
  4. ADO-TRASTUZUMAB EMTANSINE [Suspect]
     Active Substance: ADO-TRASTUZUMAB EMTANSINE
     Indication: Breast cancer metastatic
     Route: 065

REACTIONS (9)
  - Hepatotoxicity [Unknown]
  - Disease progression [Unknown]
  - Toxicity to various agents [Unknown]
  - Gastrointestinal toxicity [Unknown]
  - Diarrhoea [Unknown]
  - Anaemia [Unknown]
  - Asthenia [Unknown]
  - Pain [Unknown]
  - Coronavirus infection [Unknown]
